FAERS Safety Report 9018523 (Version 1)
Quarter: 2013Q1

REPORT INFORMATION
  Report Type: Spontaneous
  Country: US (occurrence: US)
  Receive Date: 20130118
  Receipt Date: 20130118
  Transmission Date: 20140127
  Serious: No
  Sender: FDA-Public Use
  Company Number: US-BAYER-2013-005592

PATIENT
  Age: 40 Year
  Sex: Female

DRUGS (2)
  1. MIRENA [Suspect]
     Indication: CONTRACEPTION
     Dosage: 20 MCG/24HR, CONT
     Route: 015
     Dates: start: 20121102, end: 20130114
  2. PREDNISONE [Concomitant]

REACTIONS (6)
  - Oedema peripheral [None]
  - Arthralgia [None]
  - Gait disturbance [None]
  - Movement disorder [None]
  - Pain in extremity [None]
  - Local swelling [None]
